FAERS Safety Report 12687865 (Version 2)
Quarter: 2016Q3

REPORT INFORMATION
  Report Type: Spontaneous
  Country: HU (occurrence: HU)
  Receive Date: 20160826
  Receipt Date: 20160912
  Transmission Date: 20161109
  Serious: Yes (Death)
  Sender: FDA-Public Use
  Company Number: HU-ROCHE-1803261

PATIENT
  Age: 62 Year
  Sex: Male

DRUGS (3)
  1. GAZYVARO [Suspect]
     Active Substance: OBINUTUZUMAB
     Route: 042
     Dates: start: 20160727, end: 20160727
  2. IMBRUVICA [Concomitant]
     Active Substance: IBRUTINIB
  3. GAZYVARO [Suspect]
     Active Substance: OBINUTUZUMAB
     Indication: RICHTER^S SYNDROME
     Route: 042
     Dates: start: 20160720, end: 20160720

REACTIONS (3)
  - Central nervous system infection [Fatal]
  - Off label use [Fatal]
  - Gastrointestinal bacterial infection [Fatal]

NARRATIVE: CASE EVENT DATE: 20160817
